FAERS Safety Report 24034129 (Version 3)
Quarter: 2024Q3

REPORT INFORMATION
  Report Type: Spontaneous
  Country: US (occurrence: US)
  Receive Date: 20240701
  Receipt Date: 20240918
  Transmission Date: 20241016
  Serious: Yes (Other)
  Sender: SANOFI AVENTIS
  Company Number: US-SANOFI-02108628

PATIENT
  Age: 33 Year
  Sex: Female

DRUGS (1)
  1. FERRLECIT [Suspect]
     Active Substance: SODIUM FERRIC GLUCONATE COMPLEX
     Indication: Mineral supplementation
     Dosage: 125 MG
     Dates: start: 20240621, end: 20240621

REACTIONS (2)
  - Anaphylactic reaction [Unknown]
  - Angioedema [Unknown]

NARRATIVE: CASE EVENT DATE: 20240621
